FAERS Safety Report 4876410-5 (Version None)
Quarter: 2005Q4

REPORT INFORMATION
  Report Type: 
  Country: None (occurrence: None)
  Receive Date: 20051206
  Receipt Date: 20051018
  Transmission Date: 20060501
  Serious: No
  Sender: FDA-Public Use
  Company Number: USA0510111200

PATIENT
  Age: 50 Year
  Sex: Female
  Weight: 71 kg

DRUGS (4)
  1. CYMBALTA [Suspect]
     Indication: FIBROMYALGIA
     Dosage: 60 MG DAY
     Dates: start: 20050501, end: 20051001
  2. WELLBUTRIN [Concomitant]
  3. HIGH BLOOD PRESSURE MEDICATION [Concomitant]
  4. ATIVAN [Concomitant]

REACTIONS (2)
  - FEELING ABNORMAL [None]
  - PANIC REACTION [None]
